FAERS Safety Report 8861322 (Version 1)
Quarter: 2012Q4

REPORT INFORMATION
  Report Type: Spontaneous
  Country: US (occurrence: None)
  Receive Date: 20121023
  Receipt Date: 20121023
  Transmission Date: 20130627
  Serious: No
  Sender: FDA-Public Use
  Company Number: SPI201200267

PATIENT
  Age: 69 Year
  Sex: Female
  Weight: 59 kg

DRUGS (5)
  1. AMITIZA [Suspect]
     Indication: CHRONIC IDIOPATHIC CONSTIPATION
     Route: 048
     Dates: start: 201209
  2. AMITIZA [Suspect]
     Indication: CHRONIC IDIOPATHIC CONSTIPATION
     Route: 048
  3. LISINOPRIL (LISINOPRIL) [Concomitant]
  4. PRAVASTATIN (PRAVASTATIN) [Concomitant]
  5. ESTROGEN NOS (ESTROGEN NOS) [Concomitant]

REACTIONS (4)
  - Dyspnoea [None]
  - Drug ineffective [None]
  - Chest pain [None]
  - Chest discomfort [None]
